FAERS Safety Report 7024564-7 (Version None)
Quarter: 2010Q4

REPORT INFORMATION
  Report Type: 
  Country: None (occurrence: None)
  Receive Date: 20101001
  Receipt Date: 20100920
  Transmission Date: 20110411
  Serious: Yes (Other)
  Sender: FDA-Public Use
  Company Number: CA-PFIZER INC-2010116022

PATIENT
  Age: 48 Year
  Sex: Female

DRUGS (2)
  1. LYRICA [Suspect]
     Indication: NERVE INJURY
     Dosage: 300 MG, 1X/DAY
     Dates: start: 20100301
  2. SPIRONOLACTONE [Concomitant]
     Dosage: UNK

REACTIONS (3)
  - DIABETES MELLITUS [None]
  - MUSCLE SPASMS [None]
  - MUSCLE TWITCHING [None]
